FAERS Safety Report 8505180-4 (Version None)
Quarter: 2012Q3

REPORT INFORMATION
  Report Type: 
  Country: None (occurrence: None)
  Receive Date: 20120712
  Receipt Date: 20120710
  Transmission Date: 20120928
  Serious: Yes (Hospitalization)
  Sender: FDA-Public Use
  Company Number: JP-PFIZER INC-2012165348

PATIENT

DRUGS (3)
  1. LEXAPRO [Suspect]
     Route: 048
  2. ATARAX [Suspect]
     Route: 030
  3. ZOLOFT [Suspect]
     Route: 048

REACTIONS (2)
  - HYPERVENTILATION [None]
  - OXYGEN SATURATION DECREASED [None]
